FAERS Safety Report 25452387 (Version 8)
Quarter: 2025Q4

REPORT INFORMATION
  Report Type: Spontaneous
  Country: BR (occurrence: BR)
  Receive Date: 20250618
  Receipt Date: 20251008
  Transmission Date: 20260118
  Serious: Yes (Hospitalization, Other)
  Sender: SANDOZ
  Company Number: BR-002147023-NVSC2023BR086866

PATIENT
  Age: 62 Year
  Sex: Female
  Weight: 73 kg

DRUGS (21)
  1. AMOXICILLIN [Suspect]
     Active Substance: AMOXICILLIN
     Indication: Product used for unknown indication
     Dosage: UNK
     Route: 065
  2. AMOXICILLIN [Suspect]
     Active Substance: AMOXICILLIN
     Dosage: UNK FOR 30 DAYS
     Route: 065
  3. ANASTROZOLE [Suspect]
     Active Substance: ANASTROZOLE
     Indication: Breast cancer
     Dosage: 1 MG
     Route: 065
  4. CALCIUM\VITAMIN D [Suspect]
     Active Substance: CALCIUM\VITAMIN D
     Indication: Product used for unknown indication
     Dosage: UNK
     Route: 065
  5. METAMIZOLE SODIUM [Suspect]
     Active Substance: METAMIZOLE SODIUM
     Dosage: 1 MG
     Route: 065
  6. METAMIZOLE SODIUM [Suspect]
     Active Substance: METAMIZOLE SODIUM
     Indication: Product used for unknown indication
     Dosage: UNK
     Route: 065
  7. EXEMESTANE [Suspect]
     Active Substance: EXEMESTANE
     Indication: Breast cancer
     Dosage: 25 MG
     Route: 065
     Dates: start: 20231113, end: 20231114
  8. KISQALI [Suspect]
     Active Substance: RIBOCICLIB SUCCINATE
     Dosage: UNK
     Route: 065
  9. KISQALI [Suspect]
     Active Substance: RIBOCICLIB SUCCINATE
     Dosage: UNK
     Route: 065
  10. KISQALI [Suspect]
     Active Substance: RIBOCICLIB SUCCINATE
     Dosage: UNK
     Route: 065
     Dates: start: 202303
  11. KISQALI [Suspect]
     Active Substance: RIBOCICLIB SUCCINATE
     Dosage: 3 DOSAGE FORM, QD
     Route: 065
  12. KISQALI [Suspect]
     Active Substance: RIBOCICLIB SUCCINATE
     Dosage: 2 DOSAGE FORM, QD
     Route: 065
  13. KISQALI [Suspect]
     Active Substance: RIBOCICLIB SUCCINATE
     Dosage: UNK
     Route: 065
     Dates: start: 20250110
  14. KISQALI [Suspect]
     Active Substance: RIBOCICLIB SUCCINATE
     Dosage: UNK
     Route: 065
     Dates: start: 20250210
  15. KISQALI [Suspect]
     Active Substance: RIBOCICLIB SUCCINATE
     Dosage: UNK
     Route: 065
  16. KISQALI [Suspect]
     Active Substance: RIBOCICLIB SUCCINATE
     Indication: Breast cancer
     Dosage: UNK (3)
     Route: 065
     Dates: start: 202303
  17. KISQALI [Suspect]
     Active Substance: RIBOCICLIB SUCCINATE
     Dosage: UNK
     Route: 065
     Dates: start: 20250417
  18. KISQALI [Suspect]
     Active Substance: RIBOCICLIB SUCCINATE
     Dosage: UNK, UNK (NEW CYCLE ON 12 JUN)
     Route: 065
     Dates: start: 20250612
  19. LACTULOSE [Suspect]
     Active Substance: LACTULOSE
     Indication: Product used for unknown indication
     Dosage: UNK
     Route: 065
  20. MORPHINE [Suspect]
     Active Substance: MORPHINE
     Indication: Product used for unknown indication
     Dosage: UNK, Q6H
     Route: 065
  21. SODIUM PICOSULFATE [Suspect]
     Active Substance: SODIUM PICOSULFATE
     Indication: Product used for unknown indication
     Dosage: UNK
     Route: 065

REACTIONS (60)
  - Pneumonia bacterial [Recovered/Resolved]
  - Pneumonia [Recovered/Resolved]
  - Anaemia [Recovered/Resolved]
  - Weight decreased [Unknown]
  - Obstructive airways disorder [Unknown]
  - Asthenia [Recovered/Resolved]
  - Dyspnoea [Recovering/Resolving]
  - Fatigue [Recovering/Resolving]
  - Hyperthyroidism [Unknown]
  - Hypothyroidism [Unknown]
  - Metastasis [Recovered/Resolved]
  - Metastasis [Unknown]
  - Neuralgia [Unknown]
  - Abdominal discomfort [Recovered/Resolved]
  - Retching [Not Recovered/Not Resolved]
  - Pain in extremity [Not Recovered/Not Resolved]
  - Decreased immune responsiveness [Recovered/Resolved]
  - Decreased immune responsiveness [Recovered/Resolved]
  - Palpitations [Unknown]
  - Vertigo [Unknown]
  - Vitamin D decreased [Recovered/Resolved]
  - Memory impairment [Not Recovered/Not Resolved]
  - Allergic cough [Recovered/Resolved]
  - Peripheral swelling [Recovered/Resolved]
  - Feeding disorder [Recovered/Resolved]
  - Platelet count decreased [Unknown]
  - Anaemia [Recovered/Resolved]
  - Decreased immune responsiveness [Recovered/Resolved]
  - Weight increased [Recovering/Resolving]
  - Gait disturbance [Unknown]
  - Musculoskeletal stiffness [Not Recovered/Not Resolved]
  - Muscle spasms [Unknown]
  - Head discomfort [Unknown]
  - Nodule [Unknown]
  - Dyskinesia [Unknown]
  - Hypoacusis [Unknown]
  - Muscular weakness [Not Recovered/Not Resolved]
  - Tooth disorder [Recovered/Resolved]
  - Root canal infection [Recovered/Resolved]
  - Pulpitis dental [Unknown]
  - Nasopharyngitis [Unknown]
  - Sensitivity to weather change [Unknown]
  - Bone pain [Not Recovered/Not Resolved]
  - Influenza [Recovered/Resolved]
  - Cough [Recovered/Resolved]
  - Malaise [Unknown]
  - Constipation [Recovered/Resolved]
  - Pain [Recovered/Resolved]
  - Somnolence [Not Recovered/Not Resolved]
  - Insomnia [Unknown]
  - Myalgia [Not Recovered/Not Resolved]
  - Abdominal pain [Recovered/Resolved]
  - Decreased immune responsiveness [Recovered/Resolved]
  - Headache [Recovered/Resolved]
  - Dizziness [Unknown]
  - Diarrhoea [Unknown]
  - Vomiting [Recovered/Resolved]
  - Nausea [Not Recovered/Not Resolved]
  - Pain [Recovered/Resolved]
  - Product prescribing error [Unknown]

NARRATIVE: CASE EVENT DATE: 20231101
